FAERS Safety Report 17017306 (Version 2)
Quarter: 2021Q3

REPORT INFORMATION
  Report Type: Spontaneous
  Country: JP (occurrence: JP)
  Receive Date: 20191111
  Receipt Date: 20210917
  Transmission Date: 20211014
  Serious: Yes (Hospitalization, Other)
  Sender: FDA-Public Use
  Company Number: JP-BAYER-2019-189316

PATIENT
  Age: 20 Year
  Sex: Female
  Weight: 49 kg

DRUGS (2)
  1. MIRENA [Suspect]
     Active Substance: LEVONORGESTREL
     Indication: CONTRACEPTION
     Dosage: 20 MCG/24HR, CONT
     Route: 015
     Dates: start: 20170523, end: 20170816
  2. MIRENA [Suspect]
     Active Substance: LEVONORGESTREL
     Indication: CONTRACEPTION
     Dosage: 20 MCG/24HR, CONT
     Route: 015
     Dates: start: 2017, end: 2017

REACTIONS (3)
  - Device dislocation [Recovered/Resolved]
  - Device expulsion [None]
  - Postoperative wound infection [None]

NARRATIVE: CASE EVENT DATE: 2017
